FAERS Safety Report 8177237-1 (Version None)
Quarter: 2012Q1

REPORT INFORMATION
  Report Type: 
  Country: None (occurrence: None)
  Receive Date: 20120301
  Receipt Date: 20120221
  Transmission Date: 20120608
  Serious: Yes (Hospitalization, Other)
  Sender: FDA-Public Use
  Company Number: US-ABBOTT-12P-163-0900060-00

PATIENT
  Sex: Female
  Weight: 60.836 kg

DRUGS (12)
  1. MULTIPLE VITAMINS [Concomitant]
     Indication: VITAMIN SUPPLEMENTATION
  2. METHOTREXATE [Concomitant]
     Indication: PRODUCT USED FOR UNKNOWN INDICATION
     Dosage: 6 PILLS EVERY WEEK
  3. HUMIRA [Suspect]
     Indication: ANKYLOSING SPONDYLITIS
     Dates: start: 20100907, end: 20110923
  4. DIPRIVAN [Suspect]
  5. FENTANYL [Concomitant]
     Indication: PAIN
     Route: 062
  6. REGLAN [Concomitant]
     Indication: PRODUCT USED FOR UNKNOWN INDICATION
  7. FENTANYL [Concomitant]
     Route: 042
  8. TEMAZEPAM [Concomitant]
     Indication: PRODUCT USED FOR UNKNOWN INDICATION
  9. PREDNISONE [Concomitant]
     Indication: PRODUCT USED FOR UNKNOWN INDICATION
  10. VENTOLIN [Concomitant]
     Route: 055
  11. FLEXERIL [Concomitant]
     Indication: PRODUCT USED FOR UNKNOWN INDICATION
  12. NORCO [Concomitant]
     Indication: PAIN

REACTIONS (19)
  - HYPOKALAEMIA [None]
  - RESPIRATORY ALKALOSIS [None]
  - ACUTE RESPIRATORY DISTRESS SYNDROME [None]
  - VASCULAR PSEUDOANEURYSM [None]
  - LUNG INFILTRATION [None]
  - HEADACHE [None]
  - ANAEMIA [None]
  - SEPSIS [None]
  - FLUID OVERLOAD [None]
  - BRADYCARDIA [None]
  - BLASTOMYCOSIS [None]
  - HEPATIC ENZYME INCREASED [None]
  - HYPERACUSIS [None]
  - VISUAL IMPAIRMENT [None]
  - ACUTE MYOCARDIAL INFARCTION [None]
  - SEPTIC SHOCK [None]
  - STRESS [None]
  - BLOOD CREATININE INCREASED [None]
  - CARDIAC ENZYMES INCREASED [None]
